FAERS Safety Report 6441653-6 (Version None)
Quarter: 2009Q4

REPORT INFORMATION
  Report Type: 
  Country: None (occurrence: None)
  Receive Date: 20091116
  Receipt Date: 20091106
  Transmission Date: 20100525
  Serious: Yes (Other)
  Sender: FDA-Public Use
  Company Number: PT-ASTRAZENECA-2009SE25377

PATIENT
  Age: 75 Year
  Sex: Male
  Weight: 70 kg

DRUGS (6)
  1. MERONEM [Suspect]
     Indication: BRONCHOPNEUMONIA
     Route: 042
     Dates: start: 20090925, end: 20090925
  2. ENOXAPARIN SODIUM [Concomitant]
     Route: 058
     Dates: start: 20090925
  3. PANTOPRAZOLE [Concomitant]
     Route: 048
     Dates: start: 20090925, end: 20090930
  4. FLUOXETINE [Concomitant]
     Route: 048
     Dates: start: 20090925
  5. AMIODARONE HCL [Concomitant]
     Route: 048
     Dates: start: 20090925, end: 20090930
  6. LISINOPRIL [Concomitant]
     Route: 048
     Dates: start: 20090925

REACTIONS (1)
  - LIVER DISORDER [None]
